FAERS Safety Report 9052645 (Version 2)
Quarter: 2013Q3

REPORT INFORMATION
  Report Type: Report from Study
  Country: DE (occurrence: DE)
  Receive Date: 20130207
  Receipt Date: 20130730
  Transmission Date: 20140515
  Serious: Yes (Death, Other)
  Sender: FDA-Public Use
  Company Number: DE-SANOFI-AVENTIS-2013SA011089

PATIENT
  Age: 69 Year
  Sex: Female

DRUGS (6)
  1. DOCETAXEL [Suspect]
     Indication: BREAST CANCER
     Route: 041
     Dates: start: 20060710, end: 20060710
  2. DOCETAXEL [Suspect]
     Indication: BREAST CANCER
     Route: 041
     Dates: start: 20060911, end: 20060911
  3. GEMCITABINE [Suspect]
     Indication: BREAST CANCER
     Route: 041
     Dates: start: 20060710, end: 20060710
  4. GEMCITABINE [Suspect]
     Indication: BREAST CANCER
     Route: 041
     Dates: start: 20060911, end: 20060911
  5. ANASTROZOLE [Concomitant]
     Indication: BREAST CANCER
     Route: 048
     Dates: start: 20080902
  6. ZOMETA [Concomitant]
     Route: 042
     Dates: start: 20080901, end: 20080901

REACTIONS (2)
  - Acute myeloid leukaemia [Not Recovered/Not Resolved]
  - Death [Fatal]
